FAERS Safety Report 25005872 (Version 2)
Quarter: 2025Q1

REPORT INFORMATION
  Report Type: Spontaneous
  Country: US (occurrence: US)
  Receive Date: 20250224
  Receipt Date: 20250303
  Transmission Date: 20250409
  Serious: No
  Sender: PFIZER
  Company Number: US-PFIZER INC-PV202500021103

PATIENT
  Age: 40 Year
  Sex: Male

DRUGS (8)
  1. NURTEC ODT [Suspect]
     Active Substance: RIMEGEPANT SULFATE
     Indication: Headache
  2. AMITRIPTYLINE [Concomitant]
     Active Substance: AMITRIPTYLINE
  3. GABAPENTIN [Concomitant]
     Active Substance: GABAPENTIN
  4. LYRICA [Concomitant]
     Active Substance: PREGABALIN
  5. OCREVUS [Concomitant]
     Active Substance: OCRELIZUMAB
  6. DULOXETINE [Concomitant]
     Active Substance: DULOXETINE
  7. AIMOVIG [Concomitant]
     Active Substance: ERENUMAB-AOOE
  8. VUMERITY [Concomitant]
     Active Substance: DIROXIMEL FUMARATE

REACTIONS (2)
  - Taste disorder [Unknown]
  - Gastrooesophageal reflux disease [Unknown]
